FAERS Safety Report 10227372 (Version 2)
Quarter: 2014Q3

REPORT INFORMATION
  Report Type: Spontaneous
  Country: US (occurrence: US)
  Receive Date: 20140610
  Receipt Date: 20140710
  Transmission Date: 20150326
  Serious: No
  Sender: FDA-Public Use
  Company Number: US-PFIZER INC-2014153822

PATIENT
  Sex: Female

DRUGS (6)
  1. ASPIRINE [Suspect]
     Active Substance: ASPIRIN
     Dosage: UNK
  2. LACTOSE [Suspect]
     Active Substance: LACTOSE
     Dosage: UNK
  3. MORPHINE SULFATE. [Suspect]
     Active Substance: MORPHINE SULFATE
     Dosage: UNK
  4. VALSARTAN. [Suspect]
     Active Substance: VALSARTAN
     Dosage: UNK
  5. MEPERIDINE [Suspect]
     Active Substance: MEPERIDINE
     Dosage: UNK
  6. MIDAZOLAM [Suspect]
     Active Substance: MIDAZOLAM\MIDAZOLAM HYDROCHLORIDE
     Dosage: UNK

REACTIONS (1)
  - Drug hypersensitivity [Unknown]
